FAERS Safety Report 18451031 (Version 1)
Quarter: 2020Q4

REPORT INFORMATION
  Report Type: Report from Study
  Country: US (occurrence: US)
  Receive Date: 20201030
  Receipt Date: 20201030
  Transmission Date: 20210114
  Serious: Yes (Other)
  Sender: FDA-Public Use
  Company Number: NVSC2020US285844

PATIENT
  Age: 48 Year
  Sex: Male

DRUGS (2)
  1. MAYZENT [Suspect]
     Active Substance: SIPONIMOD
     Indication: SECONDARY PROGRESSIVE MULTIPLE SCLEROSIS
  2. MAYZENT [Suspect]
     Active Substance: SIPONIMOD
     Indication: RELAPSING-REMITTING MULTIPLE SCLEROSIS
     Dosage: 2 MG, QD
     Route: 048
     Dates: start: 20200309, end: 20201009

REACTIONS (6)
  - Balance disorder [Recovering/Resolving]
  - Relapsing-remitting multiple sclerosis [Recovering/Resolving]
  - Mobility decreased [Recovering/Resolving]
  - Speech disorder [Recovering/Resolving]
  - Cognitive disorder [Recovering/Resolving]
  - Central nervous system lesion [Recovering/Resolving]

NARRATIVE: CASE EVENT DATE: 20200309
